FAERS Safety Report 13928201 (Version 1)
Quarter: 2017Q3

REPORT INFORMATION
  Report Type: Spontaneous
  Country: DE (occurrence: DE)
  Receive Date: 20170901
  Receipt Date: 20170901
  Transmission Date: 20171127
  Serious: Yes (Hospitalization, Other)
  Sender: FDA-Public Use
  Company Number: DE-ALKEM LABORATORIES LIMITED-DE-ALKEM-2017-00566

PATIENT
  Age: 25 Year
  Sex: Female

DRUGS (2)
  1. QUETIAPINE FUMARATE. [Suspect]
     Active Substance: QUETIAPINE FUMARATE
     Indication: PRODUCT USED FOR UNKNOWN INDICATION
     Dosage: POTENTIALLY LETHAL DOSE
     Route: 065
  2. AMITRIPTYLINE [Suspect]
     Active Substance: AMITRIPTYLINE
     Indication: PRODUCT USED FOR UNKNOWN INDICATION
     Dosage: POTENTIALLY LETHAL DOSE
     Route: 065

REACTIONS (5)
  - Anticholinergic syndrome [Recovering/Resolving]
  - Poisoning [Recovering/Resolving]
  - Shock [Recovering/Resolving]
  - Ventricular tachycardia [Recovering/Resolving]
  - Arrhythmia [Recovering/Resolving]
